FAERS Safety Report 8079076-9 (Version None)
Quarter: 2012Q1

REPORT INFORMATION
  Report Type: 
  Country: None (occurrence: None)
  Receive Date: 20120128
  Receipt Date: 20110817
  Transmission Date: 20120608
  Serious: No
  Sender: FDA-Public Use
  Company Number: US-ABBOTT-11P-163-0847193-00

PATIENT
  Age: 58 Year
  Sex: Female

DRUGS (6)
  1. SYNTHROID [Concomitant]
     Indication: HYPOTHYROIDISM
  2. FOSAMAX [Concomitant]
     Indication: BLOOD CALCIUM DECREASED
  3. PRO-AIR HFF [Concomitant]
     Indication: ASTHMA
  4. HUMIRA [Suspect]
     Indication: PSORIASIS
     Dates: start: 20080101
  5. NEXIUM [Concomitant]
     Indication: GASTROOESOPHAGEAL REFLUX DISEASE
  6. ADVAIR DISKUS 100/50 [Concomitant]
     Indication: ASTHMA

REACTIONS (1)
  - INJECTION SITE PAIN [None]
